FAERS Safety Report 9342417 (Version 1)
Quarter: 2013Q2

REPORT INFORMATION
  Report Type: Spontaneous
  Country: JP (occurrence: None)
  Receive Date: 20130607
  Receipt Date: 20130607
  Transmission Date: 20140414
  Serious: Yes (Death)
  Sender: FDA-Public Use
  Company Number: FK201301907

PATIENT
  Age: 56 Year
  Sex: Male

DRUGS (2)
  1. CISPLATIN [Suspect]
     Indication: NON-SMALL CELL LUNG CANCER
     Dosage: DAY 1 OF EVERY THREE WEEKS.
  2. VINORELBINE [Suspect]
     Indication: NON-SMALL CELL LUNG CANCER

REACTIONS (3)
  - Interstitial lung disease [None]
  - Condition aggravated [None]
  - Respiratory failure [None]
